FAERS Safety Report 6139012-9 (Version None)
Quarter: 2009Q1

REPORT INFORMATION
  Report Type: 
  Country: None (occurrence: None)
  Receive Date: 20090325
  Receipt Date: 20090313
  Transmission Date: 20090719
  Serious: Yes (Hospitalization, Disabling)
  Sender: FDA-Public Use
  Company Number: 108532

PATIENT
  Age: 3 Month
  Sex: Female

DRUGS (4)
  1. DAIVONEX (CALCIPOTRIOL) [Suspect]
     Indication: PITYRIASIS
     Dosage: TOPICAL
     Route: 061
     Dates: start: 20090225, end: 20090304
  2. OXAROL (MAXACALCITOL) [Suspect]
     Indication: PITYRIASIS
     Dosage: TOPICAL
     Route: 061
     Dates: start: 20090215, end: 20090222
  3. VOALLA (DEXAMETHASONE VALERATE) [Concomitant]
  4. ALMETA (ALCLOMETASONE DIPROPIONATE) [Concomitant]

REACTIONS (3)
  - BLOOD CALCIUM INCREASED [None]
  - OFF LABEL USE [None]
  - ULTRASOUND KIDNEY ABNORMAL [None]
